FAERS Safety Report 4768127-2 (Version None)
Quarter: 2005Q3

REPORT INFORMATION
  Report Type: 
  Country: None (occurrence: None)
  Receive Date: 20050912
  Receipt Date: 20050912
  Transmission Date: 20060218
  Serious: Yes (Other)
  Sender: FDA-Public Use
  Company Number: None

PATIENT
  Age: 55 Year
  Sex: Female

DRUGS (4)
  1. DILANTIN [Suspect]
     Dates: start: 20040822, end: 20040827
  2. LEVOXYL [Concomitant]
  3. HYZAAR [Concomitant]
  4. DAYPRO [Concomitant]

REACTIONS (5)
  - HEPATIC TRAUMA [None]
  - HEPATOMEGALY [None]
  - NAUSEA [None]
  - RASH [None]
  - VOMITING [None]
